FAERS Safety Report 7633325-7 (Version None)
Quarter: 2011Q3

REPORT INFORMATION
  Report Type: 
  Country: None (occurrence: None)
  Receive Date: 20110725
  Receipt Date: 20100707
  Transmission Date: 20111222
  Serious: Yes (Hospitalization, Other)
  Sender: FDA-Public Use
  Company Number: US-BRISTOL-MYERS SQUIBB COMPANY-15173834

PATIENT
  Age: 76 Year
  Sex: Female

DRUGS (2)
  1. SPRYCEL [Suspect]
     Indication: CHRONIC MYELOID LEUKAEMIA
     Dosage: RESTARTED WITH 80 MG, ORAL, QD,
  2. CARDIAZEM [Suspect]

REACTIONS (4)
  - PANCYTOPENIA [None]
  - ANAEMIA [None]
  - PULMONARY OEDEMA [None]
  - PULMONARY HYPERTENSION [None]
